FAERS Safety Report 22707508 (Version 4)
Quarter: 2025Q1

REPORT INFORMATION
  Report Type: Spontaneous
  Country: AU (occurrence: AU)
  Receive Date: 20230714
  Receipt Date: 20250326
  Transmission Date: 20250409
  Serious: Yes (Other)
  Sender: MYLAN
  Company Number: AU-MYLANLABS-2023M1073391

PATIENT

DRUGS (1)
  1. EPIPEN JR [Suspect]
     Active Substance: EPINEPHRINE
     Indication: Hypersensitivity

REACTIONS (2)
  - Device deployment issue [Unknown]
  - Drug dose omission by device [Unknown]
